FAERS Safety Report 15674167 (Version 3)
Quarter: 2020Q1

REPORT INFORMATION
  Report Type: Report from Study
  Country: GB (occurrence: GB)
  Receive Date: 20181130
  Receipt Date: 20200330
  Transmission Date: 20200409
  Serious: Yes (Other)
  Sender: FDA-Public Use
  Company Number: GB-TEVA-2018-GB-980349

PATIENT
  Age: 51 Year
  Sex: Female

DRUGS (25)
  1. ENOXAPARIN [Concomitant]
     Active Substance: ENOXAPARIN
     Route: 058
     Dates: start: 20161101, end: 20161101
  2. PARACETAMOL [Concomitant]
     Active Substance: ACETAMINOPHEN
     Route: 048
  3. ANASTROZOLE. [Suspect]
     Active Substance: ANASTROZOLE
     Indication: BREAST CANCER METASTATIC
     Dosage: 1 MILLIGRAM DAILY;
     Route: 048
     Dates: start: 20170127
  4. TRASTUZUMAB. [Suspect]
     Active Substance: TRASTUZUMAB
     Dosage: LOADING DOSE
     Route: 042
     Dates: start: 20170724
  5. TRASTUZUMAB. [Suspect]
     Active Substance: TRASTUZUMAB
     Dosage: LOADING DOSE
     Route: 042
     Dates: start: 20160920, end: 20170110
  6. SEVREDOL [Concomitant]
     Active Substance: MORPHINE
     Route: 065
  7. CYCLIZINE [Concomitant]
     Active Substance: CYCLIZINE
     Route: 048
     Dates: start: 20160627, end: 20160830
  8. TRASTUZUMAB. [Suspect]
     Active Substance: TRASTUZUMAB
     Dosage: LOADING DOSE
     Route: 042
     Dates: start: 20160606, end: 20160606
  9. TRASTUZUMAB. [Suspect]
     Active Substance: TRASTUZUMAB
     Dosage: LOADING DOSE
     Route: 042
     Dates: start: 20170201, end: 20170426
  10. SEVREDOL [Concomitant]
     Active Substance: MORPHINE
     Dosage: 10 MILLIGRAM DAILY;
     Route: 048
     Dates: start: 20161101, end: 20161102
  11. PERTUZUMAB. [Suspect]
     Active Substance: PERTUZUMAB
     Dosage: LOADING DOSE
     Route: 042
     Dates: start: 20160606
  12. TRASTUZUMAB. [Suspect]
     Active Substance: TRASTUZUMAB
     Dosage: LOADING DOSE
     Route: 042
     Dates: start: 20160718, end: 20160830
  13. TRASTUZUMAB. [Suspect]
     Active Substance: TRASTUZUMAB
     Dosage: LOADING DOSE
     Route: 042
     Dates: start: 20160627, end: 20160627
  14. DEXAMETHASONE. [Concomitant]
     Active Substance: DEXAMETHASONE
     Route: 048
     Dates: start: 20160511, end: 20160830
  15. METOCLOPRAMIDE. [Concomitant]
     Active Substance: METOCLOPRAMIDE
     Route: 048
     Dates: start: 20160511, end: 20160830
  16. CODEINE PHOSPHATE [Concomitant]
     Active Substance: CODEINE PHOSPHATE
     Route: 048
     Dates: start: 20161101, end: 20161101
  17. ZOMORPH [Concomitant]
     Active Substance: MORPHINE SULFATE
     Dosage: 60 MILLIGRAM DAILY;
     Route: 048
  18. DOCETAXEL. [Suspect]
     Active Substance: DOCETAXEL
     Indication: BREAST CANCER METASTATIC
     Route: 042
     Dates: start: 20160511, end: 20160808
  19. DOCETAXEL. [Suspect]
     Active Substance: DOCETAXEL
     Route: 042
     Dates: start: 20160808, end: 20160830
  20. TRASTUZUMAB. [Suspect]
     Active Substance: TRASTUZUMAB
     Dosage: LOADING DOSE
     Route: 042
     Dates: start: 20170517, end: 20170703
  21. PREGABALIN. [Concomitant]
     Active Substance: PREGABALIN
     Route: 065
  22. PERTUZUMAB. [Suspect]
     Active Substance: PERTUZUMAB
     Indication: BREAST CANCER METASTATIC
     Dosage: LOADING DOSE
     Route: 042
     Dates: start: 20160510, end: 20160510
  23. TRASTUZUMAB. [Suspect]
     Active Substance: TRASTUZUMAB
     Indication: BREAST CANCER METASTATIC
     Dosage: LOADING DOSE
     Route: 042
     Dates: start: 20160510, end: 20160510
  24. TRASTUZUMAB. [Suspect]
     Active Substance: TRASTUZUMAB
     Route: 042
     Dates: start: 20160510, end: 20160510
  25. CHLORPHENAMINE [Concomitant]
     Active Substance: CHLORPHENIRAMINE MALEATE
     Route: 048
     Dates: start: 20160627, end: 20160830

REACTIONS (7)
  - Lower respiratory tract infection [Recovered/Resolved]
  - Lacrimation increased [Recovered/Resolved]
  - Haemoglobin decreased [Recovered/Resolved]
  - Ejection fraction decreased [Recovered/Resolved]
  - Rhinorrhoea [Not Recovered/Not Resolved]
  - Neutropenia [Recovered/Resolved]
  - Haemoglobin decreased [Recovered/Resolved]

NARRATIVE: CASE EVENT DATE: 20160715
